FAERS Safety Report 10446074 (Version 1)
Quarter: 2014Q3

REPORT INFORMATION
  Report Type: Spontaneous
  Country: FR (occurrence: FR)
  Receive Date: 20140910
  Receipt Date: 20140910
  Transmission Date: 20150326
  Serious: Yes (Death, Other)
  Sender: FDA-Public Use
  Company Number: PHHY2014FR111551

PATIENT
  Age: 48 Year
  Sex: Female

DRUGS (7)
  1. GEMCITABINE [Suspect]
     Active Substance: GEMCITABINE\GEMCITABINE HYDROCHLORIDE
     Indication: LUNG ADENOCARCINOMA METASTATIC
  2. CARBOPLATIN. [Suspect]
     Active Substance: CARBOPLATIN
     Indication: LUNG ADENOCARCINOMA METASTATIC
  3. ERLOTINIB [Suspect]
     Active Substance: ERLOTINIB
     Indication: LUNG ADENOCARCINOMA METASTATIC
  4. BEVACIZUMAB [Suspect]
     Active Substance: BEVACIZUMAB
     Indication: LUNG ADENOCARCINOMA METASTATIC
  5. PACLITAXEL. [Suspect]
     Active Substance: PACLITAXEL
     Indication: LUNG ADENOCARCINOMA METASTATIC
  6. CISPLATIN. [Suspect]
     Active Substance: CISPLATIN
     Indication: LUNG ADENOCARCINOMA METASTATIC
  7. PEMETREXED [Suspect]
     Active Substance: PEMETREXED
     Indication: LUNG ADENOCARCINOMA METASTATIC

REACTIONS (7)
  - Vocal cord disorder [Not Recovered/Not Resolved]
  - Aphonia [Unknown]
  - Lung adenocarcinoma metastatic [Fatal]
  - Vocal cord inflammation [Not Recovered/Not Resolved]
  - Dysphonia [Not Recovered/Not Resolved]
  - Malignant neoplasm progression [Fatal]
  - Laryngeal oedema [Unknown]
